FAERS Safety Report 9706760 (Version 1)
Quarter: 2013Q4

REPORT INFORMATION
  Report Type: Report from Study
  Country: AR (occurrence: AR)
  Receive Date: 20131125
  Receipt Date: 20131125
  Transmission Date: 20140711
  Serious: Yes (Hospitalization, Other)
  Sender: FDA-Public Use
  Company Number: PHHY2013AR132992

PATIENT
  Age: 61 Year
  Sex: Male

DRUGS (2)
  1. ONBREZ [Suspect]
     Indication: RESPIRATORY DISORDER
     Dosage: 150 UG, DAILY
     Dates: start: 201310
  2. ONBREZ [Suspect]
     Indication: OFF LABEL USE

REACTIONS (2)
  - Respiratory arrest [Recovered/Resolved]
  - Blood potassium increased [Recovered/Resolved]
